FAERS Safety Report 8548870-X (Version None)
Quarter: 2012Q3

REPORT INFORMATION
  Report Type: 
  Country: None (occurrence: None)
  Receive Date: 20120730
  Receipt Date: 20120725
  Transmission Date: 20120928
  Serious: Yes (Death)
  Sender: FDA-Public Use
  Company Number: PHHY2012JP064630

PATIENT
  Age: 85 Year
  Sex: Female

DRUGS (2)
  1. EXELON [Suspect]
     Indication: DEMENTIA ALZHEIMER'S TYPE
     Dosage: 4.5 MG/ 24 HRS
     Route: 062
     Dates: start: 20120101, end: 20120628
  2. EXELON [Suspect]
     Dosage: 9 MG,/ 24 HRS
     Route: 062
     Dates: start: 20120629

REACTIONS (1)
  - ANAEMIA [None]
